FAERS Safety Report 5504681-0 (Version None)
Quarter: 2007Q4

REPORT INFORMATION
  Report Type: 
  Country: None (occurrence: None)
  Receive Date: 20071031
  Receipt Date: 20071018
  Transmission Date: 20080405
  Serious: Yes (Disabling)
  Sender: FDA-Public Use
  Company Number: 2007EU002343

PATIENT
  Sex: Male

DRUGS (13)
  1. TACROLIMUS [Suspect]
     Indication: RENAL TRANSPLANT
     Dosage: 2.5 MG, ORAL
     Route: 048
     Dates: start: 20040505
  2. DACLIZUMAB(DACLIZUMAB) [Suspect]
     Indication: RENAL TRANSPLANT
     Dosage: 65 MG, IV NOS
     Route: 042
     Dates: start: 20040505, end: 20040701
  3. MYCOPHENOLATE MOFETIL [Suspect]
     Indication: RENAL TRANSPLANT
     Dosage: 1 G, BID, ORAL
     Route: 048
     Dates: start: 20040505
  4. PREDNISONE [Suspect]
     Indication: RENAL TRANSPLANT
     Dosage: 20 MG, ORAL
     Route: 048
     Dates: start: 20040505
  5. AMLODIPINE [Concomitant]
  6. SULFAMETHOXAZOLE [Concomitant]
  7. VALGANCICLOVIR HCL [Concomitant]
  8. LEVOTHYROXINE SODIUM [Concomitant]
  9. OMEPRAZOLE [Concomitant]
  10. LORAZEPAM [Concomitant]
  11. GLYBURIDE [Concomitant]
  12. LOSARTAN POTASSIUM [Concomitant]
  13. RIFAMPICIN [Concomitant]

REACTIONS (1)
  - CATARACT [None]
